FAERS Safety Report 14381899 (Version 1)
Quarter: 2018Q1

REPORT INFORMATION
  Report Type: Spontaneous
  Country: US (occurrence: US)
  Receive Date: 20180112
  Receipt Date: 20180112
  Transmission Date: 20180509
  Serious: Yes (Disabling, Other)
  Sender: FDA-Public Use
  Company Number: US-PFIZER INC-2018012264

PATIENT
  Age: 60 Year
  Sex: Female

DRUGS (1)
  1. SOLU-MEDROL [Suspect]
     Active Substance: METHYLPREDNISOLONE SODIUM SUCCINATE
     Dosage: UNK

REACTIONS (7)
  - Multiple sclerosis [Unknown]
  - Pain [Unknown]
  - Coordination abnormal [Unknown]
  - Drug ineffective [Unknown]
  - Condition aggravated [Unknown]
  - Gait disturbance [Unknown]
  - Balance disorder [Unknown]
